FAERS Safety Report 6803005-6 (Version None)
Quarter: 2010Q2

REPORT INFORMATION
  Report Type: 
  Country: None (occurrence: None)
  Receive Date: 20100628
  Receipt Date: 20100615
  Transmission Date: 20101027
  Serious: Yes (Hospitalization)
  Sender: FDA-Public Use
  Company Number: JP-PFIZER INC-2010051384

PATIENT
  Age: 53 Year
  Sex: Female
  Weight: 68.2 kg

DRUGS (9)
  1. FARMORUBICIN [Suspect]
     Indication: BREAST CANCER
     Dosage: 120 MG, 1X/DAY
     Route: 042
     Dates: start: 20100113, end: 20100319
  2. FLUOROURACIL [Suspect]
     Indication: BREAST CANCER
     Dosage: 800 MG, 1X/DAY
     Route: 042
     Dates: start: 20100113, end: 20100319
  3. ENDOXAN [Concomitant]
     Indication: BREAST CANCER
     Dosage: 800 MG, 1X/DAY
     Route: 042
     Dates: start: 20100113, end: 20100319
  4. SEROTONE [Concomitant]
     Indication: ANTIEMETIC SUPPORTIVE CARE
     Dosage: 10 MG, 1X/DAY
     Route: 017
     Dates: start: 20100113, end: 20100319
  5. DECADRON [Concomitant]
     Indication: ANTIEMETIC SUPPORTIVE CARE
     Dosage: 6.6 MG
     Route: 042
     Dates: start: 20100113, end: 20100319
  6. DECADRON [Concomitant]
     Dosage: 4 MG, 2X/DAY
     Route: 048
     Dates: start: 20100114, end: 20100322
  7. LOXOPROFEN SODIUM [Concomitant]
     Indication: CANCER PAIN
     Dosage: 60 MG, 3X/DAY
     Dates: start: 20100115
  8. MUCOSTA [Concomitant]
     Indication: GASTRITIS
     Dosage: 100 MG, 3X/DAY
     Route: 048
     Dates: start: 20100115
  9. NEUTROGIN [Concomitant]
     Indication: NEUTROPHIL COUNT DECREASED
     Dosage: 100 UG, 1X/DAY
     Route: 058
     Dates: start: 20100120, end: 20100329

REACTIONS (2)
  - INTERSTITIAL LUNG DISEASE [None]
  - NEUTROPHIL COUNT DECREASED [None]
